FAERS Safety Report 5390975-9 (Version None)
Quarter: 2007Q3

REPORT INFORMATION
  Report Type: 
  Country: None (occurrence: None)
  Receive Date: 20070716
  Receipt Date: 20070403
  Transmission Date: 20080115
  Serious: Yes (Death)
  Sender: FDA-Public Use
  Company Number: MPS1-10677

PATIENT
  Age: 29 Month
  Sex: Female
  Weight: 15 kg

DRUGS (1)
  1. ALDURAZYME [Suspect]
     Indication: MUCOPOLYSACCHARIDOSIS I
     Dosage: 8.7 MG QWK IV
     Route: 042
     Dates: start: 20060301, end: 20070322

REACTIONS (5)
  - CARDIOPULMONARY FAILURE [None]
  - CORONARY ARTERY DISEASE [None]
  - LEFT VENTRICULAR HYPERTROPHY [None]
  - PULMONARY OEDEMA [None]
  - SPINAL LAMINECTOMY [None]
